FAERS Safety Report 8286407-3 (Version None)
Quarter: 2012Q2

REPORT INFORMATION
  Report Type: 
  Country: None (occurrence: None)
  Receive Date: 20120411
  Receipt Date: 20120411
  Transmission Date: 20120825
  Serious: No
  Sender: FDA-Public Use
  Company Number: None

PATIENT
  Age: 77 Year
  Sex: Female
  Weight: 81.6475 kg

DRUGS (1)
  1. MULTAQ [Suspect]
     Indication: ATRIAL FIBRILLATION
     Dosage: 1 TABLET 2  X 5 DAY
     Dates: start: 20111001

REACTIONS (5)
  - DYSPEPSIA [None]
  - NAUSEA [None]
  - DECREASED APPETITE [None]
  - GASTROINTESTINAL DISORDER [None]
  - MALAISE [None]
